FAERS Safety Report 7267927-7 (Version None)
Quarter: 2011Q1

REPORT INFORMATION
  Report Type: 
  Country: None (occurrence: None)
  Receive Date: 20110201
  Receipt Date: 20110128
  Transmission Date: 20110831
  Serious: Yes (Hospitalization)
  Sender: FDA-Public Use
  Company Number: MK-ROCHE-756447

PATIENT
  Sex: Female
  Weight: 65 kg

DRUGS (1)
  1. PEGINTERFERON ALFA-2A [Suspect]
     Route: 058
     Dates: start: 20091022

REACTIONS (1)
  - ASCITES [None]
